FAERS Safety Report 10156362 (Version 1)
Quarter: 2014Q2

REPORT INFORMATION
  Report Type: Spontaneous
  Country: US (occurrence: US)
  Receive Date: 20140507
  Receipt Date: 20140507
  Transmission Date: 20141212
  Serious: Yes (Hospitalization)
  Sender: FDA-Public Use
  Company Number: US-BRISTOL-MYERS SQUIBB COMPANY-20687828

PATIENT
  Age: 75 Year
  Sex: Female

DRUGS (5)
  1. ELIQUIS [Suspect]
     Indication: CEREBROVASCULAR ACCIDENT PROPHYLAXIS
     Dates: start: 20140311, end: 20140429
  2. AZACTAM [Concomitant]
  3. CLINDAMYCIN [Concomitant]
  4. ZYVOX [Concomitant]
  5. LEVAQUIN [Concomitant]

REACTIONS (2)
  - Respiratory failure [Unknown]
  - Blood glucose decreased [Unknown]
